FAERS Safety Report 7293803-X (Version None)
Quarter: 2011Q1

REPORT INFORMATION
  Report Type: 
  Country: None (occurrence: None)
  Receive Date: 20110215
  Receipt Date: 20110201
  Transmission Date: 20110831
  Serious: Yes (Hospitalization)
  Sender: FDA-Public Use
  Company Number: JP-BAYER-200912596BYL

PATIENT
  Sex: Female
  Weight: 54 kg

DRUGS (14)
  1. NEXAVAR [Suspect]
     Route: 048
     Dates: start: 20090615, end: 20090724
  2. BAKTAR [Concomitant]
     Indication: PROPHYLAXIS
     Route: 048
     Dates: start: 20090731, end: 20091001
  3. DEPAS [Concomitant]
     Dosage: 0.5 MG (DAILY DOSE), , ORAL
     Route: 048
     Dates: start: 20091201
  4. NEXAVAR [Suspect]
     Dosage: 400 MG (DAILY DOSE), , ORAL
     Route: 048
     Dates: start: 20090904, end: 20091030
  5. CODEINE SULFATE [Concomitant]
     Dosage: 60 MG (DAILY DOSE), , ORAL
     Route: 048
     Dates: start: 20090525
  6. MITIGLINIDE [Concomitant]
     Dosage: 20 MG (DAILY DOSE), , ORAL
     Route: 048
     Dates: start: 20090724
  7. TAKEPRON [Concomitant]
     Indication: PROPHYLAXIS
     Dosage: 15 MG (DAILY DOSE), , ORAL
     Route: 048
     Dates: start: 20090724
  8. MUCODYNE [Concomitant]
     Dosage: 1500 MG (DAILY DOSE), , ORAL
     Route: 048
     Dates: start: 20090615
  9. FLORID [Concomitant]
     Dosage: 5 G (DAILY DOSE), , ORAL
     Route: 048
     Dates: start: 20091121, end: 20091128
  10. CODEINE SULFATE [Concomitant]
     Dosage: 6 G (DAILY DOSE), , ORAL
     Route: 048
     Dates: start: 20090615
  11. NEXAVAR [Suspect]
     Indication: RENAL CELL CARCINOMA
     Dosage: 800 MG (DAILY DOSE), , ORAL
     Route: 048
     Dates: start: 20090525
  12. NEXAVAR [Suspect]
     Dosage: 600 MG (DAILY DOSE), , ORAL
     Route: 048
     Dates: start: 20090815, end: 20090903
  13. NEXAVAR [Suspect]
     Dosage: 400 MG (DAILY DOSE), , ORAL
     Route: 048
     Dates: start: 20091201
  14. BONALON [Concomitant]
     Dosage: 35 MG (DAILY DOSE), , ORAL
     Route: 048
     Dates: start: 20091117

REACTIONS (5)
  - RADIATION PNEUMONITIS [None]
  - PALMAR-PLANTAR ERYTHRODYSAESTHESIA SYNDROME [None]
  - DIARRHOEA [None]
  - HYPERTENSION [None]
  - HYPOTHYROIDISM [None]
